FAERS Safety Report 10973687 (Version 4)
Quarter: 2015Q4

REPORT INFORMATION
  Report Type: Spontaneous
  Country: US (occurrence: US)
  Receive Date: 20150401
  Receipt Date: 20151116
  Transmission Date: 20160304
  Serious: Yes (Hospitalization, Other)
  Sender: FDA-Public Use
  Company Number: US-MERCK-1503USA015021

PATIENT
  Sex: Male

DRUGS (4)
  1. FLOMAX [Concomitant]
     Active Substance: TAMSULOSIN HYDROCHLORIDE
     Indication: PROSTATOMEGALY
     Dosage: 0.04 MG, QD
     Dates: start: 200509, end: 201104
  2. PROSCAR [Suspect]
     Active Substance: FINASTERIDE
     Indication: PROSTATOMEGALY
     Dosage: 5 MG, UNK
     Route: 048
     Dates: start: 2004, end: 2006
  3. TRIAMTERENE. [Concomitant]
     Active Substance: TRIAMTERENE
     Indication: HYPERTENSION
     Dosage: UNK
     Dates: start: 199809
  4. DYAZIDE [Concomitant]
     Active Substance: HYDROCHLOROTHIAZIDE\TRIAMTERENE
     Dosage: UNK
     Dates: start: 1980

REACTIONS (9)
  - Cardiac operation [Unknown]
  - Dementia [Unknown]
  - Gynaecomastia [Unknown]
  - Hernia [Unknown]
  - Cardiac disorder [Unknown]
  - Urinary incontinence [Unknown]
  - Breast operation [Unknown]
  - Prostatic operation [Unknown]
  - Breast cancer [Unknown]

NARRATIVE: CASE EVENT DATE: 200607
